FAERS Safety Report 4633043-3 (Version None)
Quarter: 2005Q2

REPORT INFORMATION
  Report Type: 
  Country: None (occurrence: None)
  Receive Date: 20050412
  Receipt Date: 20050401
  Transmission Date: 20051028
  Serious: Yes (Hospitalization)
  Sender: FDA-Public Use
  Company Number: US-BRISTOL-MYERS SQUIBB COMPANY-12918538

PATIENT
  Sex: Male

DRUGS (4)
  1. ERBITUX [Suspect]
     Indication: COLON CANCER STAGE III
     Dates: start: 20050217, end: 20050217
  2. FLUOROURACIL [Suspect]
     Indication: COLON CANCER STAGE III
     Dates: start: 20050217, end: 20050217
  3. FOLINIC ACID [Suspect]
     Indication: COLON CANCER STAGE III
     Dates: start: 20050217, end: 20050217
  4. IRINOTECAN [Suspect]
     Indication: COLON CANCER STAGE III
     Dates: start: 20050217, end: 20050217

REACTIONS (1)
  - CARDIOMYOPATHY [None]
